FAERS Safety Report 24228152 (Version 1)
Quarter: 2024Q3

REPORT INFORMATION
  Report Type: Spontaneous
  Country: US (occurrence: None)
  Receive Date: 20240819
  Receipt Date: 20240819
  Transmission Date: 20241016
  Serious: No
  Sender: Public
  Company Number: None

PATIENT
  Sex: Female

DRUGS (2)
  1. CUTAQUIG [Suspect]
     Active Substance: HUMAN IMMUNOGLOBULIN G
     Indication: Selective IgG subclass deficiency
     Dosage: 12GM EVERY 2 WEEKS SUBCUTANEOUSLY?
     Route: 058
     Dates: start: 202310
  2. CUTAQUIG [Suspect]
     Active Substance: HUMAN IMMUNOGLOBULIN G
     Indication: Selective IgG subclass deficiency
     Dosage: 2GM EVERY 2 WEEKS SUBCUTANEOUSLY
     Route: 058
     Dates: start: 202310

REACTIONS (5)
  - Vertigo [None]
  - Dehydration [None]
  - Chest pain [None]
  - Incorrect dose administered [None]
  - Product prescribing issue [None]
